FAERS Safety Report 5723380-3 (Version None)
Quarter: 2008Q2

REPORT INFORMATION
  Report Type: 
  Country: None (occurrence: None)
  Receive Date: 20080425
  Receipt Date: 20080409
  Transmission Date: 20081010
  Serious: Yes (Hospitalization)
  Sender: FDA-Public Use
  Company Number: IDA-00040

PATIENT
  Age: 61 Year
  Sex: Male

DRUGS (9)
  1. AVLOCARDYL:  (PROPRANOLOL) STRENGTH (S):  40 MG [Suspect]
     Dosage: 40 MG DAILY, PO, TABL
     Route: 048
  2. AVANDIA [Suspect]
     Dosage: 4 MG DAILY, PO, FORMULATION:  TABL
     Route: 048
     Dates: end: 20071230
  3. UMULINE NPH:  (INSULIN HUMAN INJECTION, ISOPHANE) [Suspect]
     Dosage: TOTAL DAILY DOSE: 70 IU/ 20IU BID/ 30 IU BID, SQ, INJ
     Route: 058
  4. NOVORAPID:  (INSULIN ASPART) [Suspect]
     Dosage: 10 IIU BID, SQ, INJ
     Route: 058
     Dates: end: 20071230
  5. ATARAX [Concomitant]
  6. FOLIC ACID [Concomitant]
  7. COZAAR [Concomitant]
  8. ALDACTONE [Concomitant]
  9. LASIX [Concomitant]

REACTIONS (2)
  - DRUG INTERACTION [None]
  - HYPOGLYCAEMIA [None]
